FAERS Safety Report 9098026 (Version 3)
Quarter: 2013Q2

REPORT INFORMATION
  Report Type: Spontaneous
  Country: US (occurrence: US)
  Receive Date: 20130125
  Receipt Date: 20130423
  Transmission Date: 20140414
  Serious: Yes (Hospitalization, Other)
  Sender: FDA-Public Use
  Company Number: US-ELI_LILLY_AND_COMPANY-US201301006860

PATIENT
  Age: 76 Year
  Sex: Female
  Weight: 57.14 kg

DRUGS (11)
  1. HUMULIN 30% REGULAR, 70% NPH [Suspect]
     Indication: TYPE 2 DIABETES MELLITUS
     Dosage: 30 U, EACH MORNING
     Route: 058
     Dates: start: 1980, end: 20130114
  2. HUMULIN 30% REGULAR, 70% NPH [Suspect]
     Dosage: 20 U, EACH EVENING
     Route: 058
     Dates: start: 1980, end: 20130114
  3. HUMULIN 30% REGULAR, 70% NPH [Suspect]
     Indication: TYPE 2 DIABETES MELLITUS
     Dosage: UNK, UNKNOWN
  4. HUMULIN 30% REGULAR, 70% NPH [Suspect]
     Dosage: 30 U, EACH MORNING
     Dates: start: 20130114
  5. HUMULIN 30% REGULAR, 70% NPH [Suspect]
     Dosage: 20 U, EACH EVENING
     Dates: start: 20130114
  6. SYNTHROID [Concomitant]
  7. HYDROXYZINE HCL [Concomitant]
     Dosage: 50 MG, UNKNOWN
  8. CARBIDOPA LEVODOPA [Concomitant]
     Dosage: 25 MG, UNKNOWN
  9. ASPIRIN [Concomitant]
  10. INSULIN [Concomitant]
     Dosage: UNK, PRN
  11. NOVOLIN [Concomitant]

REACTIONS (9)
  - Ischaemic stroke [Recovered/Resolved with Sequelae]
  - Transient ischaemic attack [Recovered/Resolved with Sequelae]
  - Transient ischaemic attack [Recovered/Resolved with Sequelae]
  - Urinary tract infection [Recovered/Resolved]
  - Faecaloma [Recovered/Resolved]
  - Muscular weakness [Recovered/Resolved]
  - Hemiparesis [Recovered/Resolved]
  - Amnesia [Recovered/Resolved]
  - Blood glucose increased [Recovered/Resolved]
